FAERS Safety Report 5307947-2 (Version None)
Quarter: 2007Q2

REPORT INFORMATION
  Report Type: 
  Country: None (occurrence: None)
  Receive Date: 20070426
  Receipt Date: 20070417
  Transmission Date: 20071010
  Serious: Yes (Other)
  Sender: FDA-Public Use
  Company Number: 2007UW07549

PATIENT
  Age: 3 Year
  Sex: Female

DRUGS (1)
  1. ATACAND [Suspect]
     Dosage: 3 TABLETS 16 MG
     Route: 048

REACTIONS (1)
  - OVERDOSE [None]
